FAERS Safety Report 6690109-4 (Version None)
Quarter: 2010Q2

REPORT INFORMATION
  Report Type: 
  Country: None (occurrence: None)
  Receive Date: 20100421
  Receipt Date: 20100414
  Transmission Date: 20101027
  Serious: Yes (Hospitalization)
  Sender: FDA-Public Use
  Company Number: PHHO2010US02829

PATIENT
  Sex: Male
  Weight: 81 kg

DRUGS (2)
  1. ALDESLEUKIN C-ALDE+ [Suspect]
     Indication: METASTATIC RENAL CELL CARCINOMA
     Dosage: UNK
     Route: 042
     Dates: start: 20100209, end: 20100214
  2. WARFARIN SODIUM [Concomitant]

REACTIONS (7)
  - ATRIAL FIBRILLATION [None]
  - CHRONIC OBSTRUCTIVE PULMONARY DISEASE [None]
  - DYSPNOEA EXERTIONAL [None]
  - HICCUPS [None]
  - INSOMNIA [None]
  - INTERNATIONAL NORMALISED RATIO INCREASED [None]
  - WHEEZING [None]
